FAERS Safety Report 7561855-5 (Version None)
Quarter: 2011Q2

REPORT INFORMATION
  Report Type: 
  Country: None (occurrence: None)
  Receive Date: 20110621
  Receipt Date: 20110615
  Transmission Date: 20111010
  Serious: Yes (Other)
  Sender: FDA-Public Use
  Company Number: US-B.I. PHARMACEUTICALS,INC./RIDGEFIELD-2011-BP-14062BP

PATIENT
  Age: 75 Year
  Sex: Female

DRUGS (6)
  1. LEXAPRO [Concomitant]
     Indication: ANXIETY
  2. METOPROLOL TARTRATE [Concomitant]
  3. PREVACID [Concomitant]
     Indication: DYSPEPSIA
     Dosage: 15 MG
  4. PRADAXA [Suspect]
     Indication: ATRIAL FIBRILLATION
     Dosage: 300 MG
     Route: 048
     Dates: start: 20110512, end: 20110521
  5. LEVOTHYROXINE SODIUM [Concomitant]
     Indication: THYROID DISORDER
  6. ASPIRIN [Concomitant]
     Dosage: 81 MG

REACTIONS (2)
  - TRANSIENT ISCHAEMIC ATTACK [None]
  - EAR HAEMORRHAGE [None]
